FAERS Safety Report 20166527 (Version 1)
Quarter: 2021Q4

REPORT INFORMATION
  Report Type: Spontaneous
  Country: PT (occurrence: PT)
  Receive Date: 20211209
  Receipt Date: 20211209
  Transmission Date: 20220304
  Serious: Yes (Hospitalization, Other)
  Sender: FDA-Public Use
  Company Number: PT-GLAXOSMITHKLINE-PTCH2021GSK086786

PATIENT
  Age: 20 Year
  Sex: Male

DRUGS (2)
  1. ACETAMINOPHEN [Suspect]
     Active Substance: ACETAMINOPHEN
     Indication: Toothache
     Dosage: UNK
     Route: 048
  2. IBUPROFEN [Suspect]
     Active Substance: IBUPROFEN
     Indication: Toothache
     Dosage: EXCEEDED 600 MG, EVERY 8 HOURS DAILY IN A WEEK
     Route: 048

REACTIONS (6)
  - Renal cortical necrosis [Not Recovered/Not Resolved]
  - Acute kidney injury [Not Recovered/Not Resolved]
  - Abdominal pain [Not Recovered/Not Resolved]
  - Urine output decreased [Not Recovered/Not Resolved]
  - Anaemia [Not Recovered/Not Resolved]
  - Anuria [Not Recovered/Not Resolved]
